FAERS Safety Report 7374288-1 (Version None)
Quarter: 2011Q1

REPORT INFORMATION
  Report Type: 
  Country: None (occurrence: None)
  Receive Date: 20110325
  Receipt Date: 20110228
  Transmission Date: 20110831
  Serious: No
  Sender: FDA-Public Use
  Company Number: US-B.I. PHARMACEUTICALS,INC./RIDGEFIELD-2011-BP-05631BP

PATIENT
  Age: 67 Year
  Sex: Female

DRUGS (10)
  1. PREMARIN [Concomitant]
     Route: 048
     Dates: start: 20101201
  2. PRADAXA [Suspect]
     Indication: ATRIAL FIBRILLATION
     Dosage: 300 MG
     Route: 048
     Dates: start: 20110101
  3. MULTAQ [Suspect]
     Dosage: 800 MG
     Route: 048
     Dates: start: 20110101
  4. LASIX [Concomitant]
     Dosage: 80 MG
     Route: 048
     Dates: start: 20100101
  5. TOPORAL [Concomitant]
     Dosage: 100 MG
     Route: 048
     Dates: start: 20030101
  6. LIPITOR [Concomitant]
     Dosage: 20 MG
     Route: 048
     Dates: start: 20090101
  7. COMBIVENT [Concomitant]
     Route: 055
     Dates: start: 20070101
  8. SINGULAIR [Concomitant]
     Dosage: 10 MG
     Route: 048
     Dates: start: 20010101
  9. NEXIUM [Concomitant]
     Dosage: 20 MG
     Route: 048
     Dates: start: 20010101
  10. SYMBICORT [Concomitant]
     Route: 048
     Dates: start: 20090101

REACTIONS (3)
  - WEIGHT INCREASED [None]
  - DIARRHOEA [None]
  - SWELLING [None]
